FAERS Safety Report 4442086-4 (Version None)
Quarter: 2004Q3

REPORT INFORMATION
  Report Type: 
  Country: None (occurrence: None)
  Receive Date: 20040901
  Receipt Date: 20040819
  Transmission Date: 20050211
  Serious: Yes (Disabling)
  Sender: FDA-Public Use
  Company Number: 2004GB01887

PATIENT
  Age: 77 Year
  Sex: Male
  Weight: 89 kg

DRUGS (6)
  1. FELODIPINE [Suspect]
     Indication: HYPERTENSION
     Dosage: 5 MG DAILY PO
     Route: 048
     Dates: start: 20020219
  2. WARFARIN SODIUM [Concomitant]
  3. DIGOXIN [Concomitant]
  4. BENDROFLUAZIDE [Concomitant]
  5. LOPERAMIDE HCL [Concomitant]
  6. CODEINE [Concomitant]

REACTIONS (4)
  - HAEMARTHROSIS [None]
  - MOBILITY DECREASED [None]
  - MUSCULOSKELETAL STIFFNESS [None]
  - MYALGIA [None]
